FAERS Safety Report 18021572 (Version 1)
Quarter: 2020Q3

REPORT INFORMATION
  Report Type: Spontaneous
  Country: CN (occurrence: CN)
  Receive Date: 20200715
  Receipt Date: 20200715
  Transmission Date: 20201103
  Serious: Yes (Death)
  Sender: FDA-Public Use
  Company Number: CN-ROCHE-2640576

PATIENT
  Age: 58 Year
  Sex: Male

DRUGS (7)
  1. PEMETREXED. [Concomitant]
     Active Substance: PEMETREXED
     Dates: start: 20171022
  2. CISPLATIN. [Concomitant]
     Active Substance: CISPLATIN
     Indication: LUNG ADENOCARCINOMA
     Dates: start: 20170930
  3. CISPLATIN. [Concomitant]
     Active Substance: CISPLATIN
     Dosage: 40 MG (DAY2?3), 50 MG (DAY3)
     Dates: start: 20171022, end: 201712
  4. AVASTIN [Suspect]
     Active Substance: BEVACIZUMAB
     Indication: LUNG ADENOCARCINOMA
     Route: 042
     Dates: start: 20170930
  5. AVASTIN [Suspect]
     Active Substance: BEVACIZUMAB
     Route: 042
     Dates: start: 20171022
  6. PEMETREXED. [Concomitant]
     Active Substance: PEMETREXED
     Indication: LUNG ADENOCARCINOMA
     Dates: start: 20170930
  7. NEDAPLATIN [Concomitant]
     Active Substance: NEDAPLATIN
     Indication: LUNG ADENOCARCINOMA
     Dates: start: 20171222

REACTIONS (2)
  - Pneumonia [Fatal]
  - Gastrointestinal disorder [Unknown]
